FAERS Safety Report 9338393 (Version 2)
Quarter: 2013Q3

REPORT INFORMATION
  Report Type: Report from Study
  Country: KR (occurrence: KR)
  Receive Date: 20130610
  Receipt Date: 20130704
  Transmission Date: 20140515
  Serious: Yes (Hospitalization, Other)
  Sender: FDA-Public Use
  Company Number: KR-ELI_LILLY_AND_COMPANY-KR201305009564

PATIENT
  Sex: Female

DRUGS (1)
  1. LISPRO 25LIS75NPL KWIKPEN / MIRIOPEN [Suspect]
     Indication: TYPE 2 DIABETES MELLITUS
     Dosage: 14 U, QD
     Route: 058
     Dates: start: 201304

REACTIONS (2)
  - Gastric haemorrhage [Recovered/Resolved]
  - Scab [Recovered/Resolved]
